FAERS Safety Report 14234505 (Version 1)
Quarter: 2017Q4

REPORT INFORMATION
  Report Type: Spontaneous
  Country: US (occurrence: US)
  Receive Date: 20171129
  Receipt Date: 20171129
  Transmission Date: 20180321
  Serious: No
  Sender: FDA-Public Use
  Company Number: US-JNJFOC-20171008724

PATIENT
  Sex: Male

DRUGS (4)
  1. PARACETAMOL [Suspect]
     Active Substance: ACETAMINOPHEN
     Indication: INFUSION RELATED REACTION
     Route: 048
  2. DIPHENHYDRAMINE. [Concomitant]
     Active Substance: DIPHENHYDRAMINE
     Indication: INFUSION RELATED REACTION
     Route: 042
  3. DARATUMUMAB [Concomitant]
     Active Substance: DARATUMUMAB
     Indication: COLON CANCER
     Route: 042
     Dates: start: 20170926, end: 20170926
  4. DARATUMUMAB [Concomitant]
     Active Substance: DARATUMUMAB
     Indication: COLON CANCER
     Route: 042
     Dates: start: 201709

REACTIONS (2)
  - Product use in unapproved indication [Unknown]
  - Off label use [Unknown]
